FAERS Safety Report 14905504 (Version 2)
Quarter: 2020Q3

REPORT INFORMATION
  Report Type: Spontaneous
  Country: DE (occurrence: DE)
  Receive Date: 20180517
  Receipt Date: 20190311
  Transmission Date: 20201105
  Serious: Yes (Other)
  Sender: FDA-Public Use
  Company Number: DE-AUROBINDO-AUR-APL-2018-025936

PATIENT
  Age: 51 Year
  Sex: Female
  Weight: 76 kg

DRUGS (8)
  1. CIPROFLOXACIN. [Concomitant]
     Active Substance: CIPROFLOXACIN
     Indication: DIVERTICULITIS
     Dosage: UNK
     Route: 048
     Dates: start: 20150717, end: 20150726
  2. PANTOZOL [Concomitant]
     Active Substance: PANTOPRAZOLE SODIUM
     Indication: CHOLELITHIASIS
     Dosage: UNK
     Route: 048
     Dates: start: 20150601
  3. BEVACIZUMAB. [Suspect]
     Active Substance: BEVACIZUMAB
     Indication: BREAST CANCER
     Dosage: ON 14/APR/2016, RECEIVED LAST DOSE PRIOR TO SECOND EPISODE OF PROTEINUREA.
     Route: 042
     Dates: start: 20150918
  4. BEVACIZUMAB. [Suspect]
     Active Substance: BEVACIZUMAB
     Dosage: 760 MILLIGRAM
     Route: 042
     Dates: start: 20150504
  5. CEFUROXIM                          /00454601/ [Concomitant]
     Active Substance: CEFUROXIME
     Indication: DIVERTICULITIS
     Dosage: 500 MILLIGRAM, DAILY
     Route: 048
     Dates: start: 20150727, end: 20150810
  6. BEVACIZUMAB. [Suspect]
     Active Substance: BEVACIZUMAB
     Dosage: 760 MILLIGRAM
     Route: 042
     Dates: start: 20160512
  7. PACLITAXEL. [Concomitant]
     Active Substance: PACLITAXEL
     Indication: BREAST CANCER
     Dosage: 145 MILLIGRAM
     Route: 042
     Dates: start: 20150504
  8. IBANDRONIC ACID. [Suspect]
     Active Substance: IBANDRONIC ACID
     Indication: PRODUCT USED FOR UNKNOWN INDICATION
     Dosage: UNK
     Route: 065

REACTIONS (6)
  - Proteinuria [Recovered/Resolved]
  - Headache [Recovered/Resolved]
  - Mouth haemorrhage [Unknown]
  - Ear pain [Unknown]
  - Arrhythmia [Unknown]
  - Hypertension [Not Recovered/Not Resolved]

NARRATIVE: CASE EVENT DATE: 20151008
